FAERS Safety Report 9308826 (Version 1)
Quarter: 2013Q2

REPORT INFORMATION
  Report Type: Spontaneous
  Country: JP (occurrence: JP)
  Receive Date: 20130524
  Receipt Date: 20130524
  Transmission Date: 20140414
  Serious: Yes (Other)
  Sender: FDA-Public Use
  Company Number: JP-ASTRAZENECA-2013SE34943

PATIENT
  Sex: 0

DRUGS (1)
  1. TENORMIN [Suspect]
     Route: 064

REACTIONS (6)
  - Premature baby [Unknown]
  - Foetal distress syndrome [Recovered/Resolved]
  - Foetal growth restriction [Unknown]
  - Hypoglycaemia [Unknown]
  - Hyperbilirubinaemia [Unknown]
  - Long QT syndrome [Unknown]
